FAERS Safety Report 9680938 (Version 1)
Quarter: 2013Q4

REPORT INFORMATION
  Report Type: Report from Study
  Country: US (occurrence: US)
  Receive Date: 20131111
  Receipt Date: 20131111
  Transmission Date: 20140711
  Serious: Yes (Other)
  Sender: FDA-Public Use
  Company Number: US-ALEXION PHARMACEUTICALS INC.-A201001777

PATIENT
  Sex: Male

DRUGS (1)
  1. SOLIRIS [Suspect]
     Indication: PAROXYSMAL NOCTURNAL HAEMOGLOBINURIA
     Dosage: UNK
     Route: 042

REACTIONS (9)
  - Coronary artery bypass [Unknown]
  - Arteriosclerosis coronary artery [Unknown]
  - Quality of life decreased [Unknown]
  - Chest pain [Unknown]
  - Dysphagia [Unknown]
  - Erectile dysfunction [Unknown]
  - Haemoglobinuria [Unknown]
  - Abdominal pain [Unknown]
  - Jaundice [Unknown]
